FAERS Safety Report 9258309 (Version 1)
Quarter: 2013Q2

REPORT INFORMATION
  Report Type: Spontaneous
  Country: US (occurrence: None)
  Receive Date: 20130424
  Receipt Date: 20130424
  Transmission Date: 20140414
  Serious: Yes (Other)
  Sender: FDA-Public Use
  Company Number: None

PATIENT
  Sex: Male

DRUGS (1)
  1. VOLTAREN GEL [Suspect]
     Indication: TENDON DISORDER
     Dates: start: 20130330

REACTIONS (3)
  - Photopsia [None]
  - Dysgeusia [None]
  - Oral disorder [None]
